FAERS Safety Report 18246640 (Version 2)
Quarter: 2020Q4

REPORT INFORMATION
  Report Type: Spontaneous
  Country: US (occurrence: US)
  Receive Date: 20200909
  Receipt Date: 20201009
  Transmission Date: 20210113
  Serious: Yes (Other)
  Sender: FDA-Public Use
  Company Number: US-BAYER-2020-184391

PATIENT
  Age: 33 Year
  Sex: Female

DRUGS (1)
  1. KYLEENA [Suspect]
     Active Substance: LEVONORGESTREL
     Dosage: 17.5 ?G PER DAY CONTNIUOUSLY
     Route: 015

REACTIONS (4)
  - Vision blurred [None]
  - Gait disturbance [None]
  - Cerebrovascular accident [Recovered/Resolved with Sequelae]
  - Monoparesis [None]

NARRATIVE: CASE EVENT DATE: 20200814
